FAERS Safety Report 19105407 (Version 12)
Quarter: 2022Q3

REPORT INFORMATION
  Report Type: Spontaneous
  Country: CA (occurrence: CA)
  Receive Date: 20210407
  Receipt Date: 20220922
  Transmission Date: 20221027
  Serious: Yes (Hospitalization, Other)
  Sender: FDA-Public Use
  Company Number: CA-PFIZER INC-2021036483

PATIENT
  Age: 61 Year
  Sex: Female
  Weight: 95.7 kg

DRUGS (12)
  1. IBRANCE [Suspect]
     Active Substance: PALBOCICLIB
     Indication: Breast cancer
     Dosage: 125 MG
     Route: 048
     Dates: start: 20190713
  2. IBRANCE [Suspect]
     Active Substance: PALBOCICLIB
     Dosage: 125 MG
     Route: 048
     Dates: start: 20210313
  3. IBRANCE [Suspect]
     Active Substance: PALBOCICLIB
     Dosage: 125 MG, CYCLIC (OD FOR 21 DAYS THEN 7 DAYS OFF)
     Route: 048
     Dates: start: 20210618
  4. CALCIUM [Concomitant]
     Active Substance: CALCIUM
     Dosage: UNK
  5. VENLAFAXINE HYDROCHLORIDE [Concomitant]
     Active Substance: VENLAFAXINE HYDROCHLORIDE
     Dosage: 150 MG, 1X/DAY
  6. GABAPENTIN [Concomitant]
     Active Substance: GABAPENTIN
     Dosage: 300 MG, 1X/DAY
  7. LETROZOLE [Concomitant]
     Active Substance: LETROZOLE
     Dosage: 2.5 MG, 1X/DAY
  8. MG [MAGNESIUM SULFATE] [Concomitant]
     Dosage: UNK, 1X/DAY
  9. PREGABALIN [Concomitant]
     Active Substance: PREGABALIN
     Dosage: UNK
  10. PREGABALIN [Concomitant]
     Active Substance: PREGABALIN
     Dosage: 25 MG, 1X/DAY
  11. THYROID [Concomitant]
     Active Substance: LEVOTHYROXINE\LIOTHYRONINE
     Dosage: UNK, 2X/DAY
  12. WELLBUTRIN [Concomitant]
     Active Substance: BUPROPION HYDROCHLORIDE
     Dosage: 300 MG, 1X/DAY

REACTIONS (12)
  - Pulmonary thrombosis [Unknown]
  - Pneumonia [Unknown]
  - COVID-19 [Unknown]
  - Diarrhoea [Unknown]
  - Oropharyngeal pain [Unknown]
  - Chills [Unknown]
  - Pain [Unknown]
  - Dyspnoea [Unknown]
  - Nausea [Unknown]
  - Cough [Unknown]
  - Weight increased [Unknown]
  - Infected skin ulcer [Recovered/Resolved]
